FAERS Safety Report 17575159 (Version 12)
Quarter: 2021Q2

REPORT INFORMATION
  Report Type: Report from Study
  Country: US (occurrence: US)
  Receive Date: 20200324
  Receipt Date: 20210519
  Transmission Date: 20210716
  Serious: Yes (Hospitalization)
  Sender: FDA-Public Use
  Company Number: US-ROCHE-2569991

PATIENT
  Age: 75 Year
  Sex: Male
  Weight: 79 kg

DRUGS (24)
  1. VITAMIN D3 [Concomitant]
     Active Substance: CHOLECALCIFEROL
  2. CARVEDILOL. [Concomitant]
     Active Substance: CARVEDILOL
     Dosage: TWO TIMES DAILY WITH MEALS
     Route: 048
  3. NEOSTIGMINE. [Suspect]
     Active Substance: NEOSTIGMINE METHYLSULFATE
     Dosage: ON 07/MAR/2020, SURGERY WAS FOLLOWING FOR THE ILEUS AND THE SUBJECT WAS GIVEN 0.4 MG NEOSTIGMINE SUB
     Route: 058
     Dates: start: 20200307
  4. VITAMIN C [Concomitant]
     Active Substance: ASCORBIC ACID
  5. SITAGLIPTIN METFORMIN [Concomitant]
     Active Substance: METFORMIN HYDROCHLORIDE\SITAGLIPTIN PHOSPHATE
     Dosage: 50?1000 MG ONE TABLET BY MOUTH WITH MEALS
     Route: 048
  6. NEOSTIGMINE. [Suspect]
     Active Substance: NEOSTIGMINE METHYLSULFATE
     Indication: ILEUS PARALYTIC
     Route: 065
  7. GLUCOSAMINE AND CHONDROITIN [Concomitant]
     Active Substance: CHONDROITIN SULFATE (BOVINE)\GLUCOSAMINE HYDROCHLORIDE
  8. COBIMETINIB. [Suspect]
     Active Substance: COBIMETINIB
     Indication: NON-SMALL CELL LUNG CANCER
     Route: 048
     Dates: start: 20200219, end: 20200303
  9. ACETAMINOPHEN. [Concomitant]
     Active Substance: ACETAMINOPHEN
     Dosage: EVERY SIX HOURS WHEN NEEDED
     Route: 048
  10. OMEGA?3 FATTY ACIDS [Concomitant]
     Active Substance: OMEGA-3 FATTY ACIDS
     Route: 031
  11. AMARYL [Concomitant]
     Active Substance: GLIMEPIRIDE
  12. PANTOPRAZOLE SODIUM. [Concomitant]
     Active Substance: PANTOPRAZOLE SODIUM
     Route: 048
  13. JANUMET [Concomitant]
     Active Substance: METFORMIN HYDROCHLORIDE\SITAGLIPTIN PHOSPHATE
     Dosage: XR
  14. TAMSULOSIN HCL [Concomitant]
     Active Substance: TAMSULOSIN HYDROCHLORIDE
     Route: 048
  15. ASCORBIC ACID;BIOFLAVONOIDS [Concomitant]
     Dosage: 1 TABLET
     Route: 048
  16. NITROGLYCERIN. [Concomitant]
     Active Substance: NITROGLYCERIN
  17. BABY ASPIRIN [Concomitant]
     Active Substance: ASPIRIN
  18. TYLENOL [Concomitant]
     Active Substance: ACETAMINOPHEN
     Route: 048
     Dates: start: 20191119
  19. COZAAR [Concomitant]
     Active Substance: LOSARTAN POTASSIUM
  20. FISH OIL [Concomitant]
     Active Substance: FISH OIL
  21. AMIODARONE HCL [Concomitant]
     Active Substance: AMIODARONE HYDROCHLORIDE
     Route: 048
  22. ASPIRIN. [Concomitant]
     Active Substance: ASPIRIN
  23. LOSARTAN POTASSIUM. [Concomitant]
     Active Substance: LOSARTAN POTASSIUM
     Dosage: ONE TABLET BY?MOUTH ONCE DAILY
     Route: 048
  24. ROSUVASTATIN CALCIUM. [Concomitant]
     Active Substance: ROSUVASTATIN CALCIUM

REACTIONS (2)
  - Myocardial infarction [Recovered/Resolved]
  - Ileus paralytic [Recovered/Resolved]

NARRATIVE: CASE EVENT DATE: 20200302
